FAERS Safety Report 9061604 (Version 2)
Quarter: 2013Q1

REPORT INFORMATION
  Report Type: Spontaneous
  Country: JP (occurrence: JP)
  Receive Date: 20130204
  Receipt Date: 20130218
  Transmission Date: 20140127
  Serious: Yes (Other)
  Sender: FDA-Public Use
  Company Number: JP-MYLANLABS-2013S1001953

PATIENT
  Age: 69 Year
  Sex: Female

DRUGS (1)
  1. REMIFENTANIL [Suspect]
     Indication: ANAESTHESIA

REACTIONS (1)
  - Trigemino-cardiac reflex [Recovered/Resolved]
